FAERS Safety Report 17076610 (Version 3)
Quarter: 2020Q2

REPORT INFORMATION
  Report Type: Spontaneous
  Country: US (occurrence: US)
  Receive Date: 20191126
  Receipt Date: 20200511
  Transmission Date: 20200713
  Serious: Yes (Other)
  Sender: FDA-Public Use
  Company Number: US-SA-2019SA324832

PATIENT
  Age: 74 Year
  Sex: Female

DRUGS (1)
  1. ZANTAC 75 [Suspect]
     Active Substance: RANITIDINE HYDROCHLORIDE
     Indication: ABDOMINAL DISCOMFORT
     Dosage: 75 MG, UNK, OFF AND ON/NOT EVERY DAY
     Route: 065
     Dates: start: 2000, end: 2019

REACTIONS (4)
  - Blood pressure abnormal [Unknown]
  - Cerebrovascular accident [Unknown]
  - Alopecia [Unknown]
  - Feeling abnormal [Unknown]

NARRATIVE: CASE EVENT DATE: 2017
